FAERS Safety Report 24310287 (Version 2)
Quarter: 2024Q3

REPORT INFORMATION
  Report Type: Spontaneous
  Country: US (occurrence: US)
  Receive Date: 20240912
  Receipt Date: 20240917
  Transmission Date: 20241017
  Serious: No
  Sender: ABBVIE
  Company Number: US-ABBVIE-5905494

PATIENT
  Age: 18 Year
  Sex: Male

DRUGS (1)
  1. HUMIRA [Suspect]
     Active Substance: ADALIMUMAB
     Indication: Behcet^s syndrome
     Dosage: FORM STRENGTH: 40 MG
     Route: 058

REACTIONS (3)
  - Off label use [Not Recovered/Not Resolved]
  - Injection site reaction [Unknown]
  - Fear of injection [Unknown]

NARRATIVE: CASE EVENT DATE: 20240831
